FAERS Safety Report 8930034 (Version 1)
Quarter: 2012Q4

REPORT INFORMATION
  Report Type: 
  Country: SE (occurrence: SE)
  Receive Date: 20121128
  Receipt Date: 20121128
  Transmission Date: 20130627
  Serious: Yes (Hospitalization, Other)
  Sender: FDA-Public Use
  Company Number: SE-ROCHE-1155372

PATIENT
  Sex: Female

DRUGS (5)
  1. LUCENTIS [Suspect]
     Indication: AGE-RELATED MACULAR DEGENERATION
     Route: 050
     Dates: start: 20120503
  2. LUCENTIS [Suspect]
     Dosage: fifth injection
     Route: 050
     Dates: start: 20120925
  3. SYMBICORT [Concomitant]
  4. SELOKEN [Concomitant]
     Route: 065
  5. FELODIPIN [Concomitant]
     Route: 065

REACTIONS (2)
  - Atrial fibrillation [Not Recovered/Not Resolved]
  - Cardiac failure [Unknown]
